FAERS Safety Report 14713677 (Version 8)
Quarter: 2018Q3

REPORT INFORMATION
  Report Type: Spontaneous
  Country: US (occurrence: US)
  Receive Date: 20180404
  Receipt Date: 20180907
  Transmission Date: 20181010
  Serious: Yes (Other)
  Sender: FDA-Public Use
  Company Number: US-VERTEX PHARMACEUTICALS-2018-002223

PATIENT
  Age: 6 Year
  Sex: Male
  Weight: 19 kg

DRUGS (20)
  1. CULTURELLE [Concomitant]
     Active Substance: LACTOBACILLUS RHAMNOSUS
  2. MONTELUKAST [Concomitant]
     Active Substance: MONTELUKAST SODIUM
     Dosage: 1 DOSAGE FORM, QD. MAY GIVE VIA G TUBE PRN
  3. PROAIR HFA [Concomitant]
     Active Substance: ALBUTEROL SULFATE
     Indication: COUGH
  4. FLUTICASONE PROPRIONATE [Concomitant]
     Active Substance: FLUTICASONE PROPIONATE
     Dosage: 1 SPRAY IN EACH NOSTRIL, QD
  5. POLYETHYLENE GLYCOL 3350. [Concomitant]
     Active Substance: POLYETHYLENE GLYCOL 3350
     Dosage: 1/2 CAPFUL IN BEVERAGE OF CHOICE AND DRINK BID
     Route: 048
  6. DULERA [Concomitant]
     Active Substance: FORMOTEROL FUMARATE DIHYDRATE\MOMETASONE FUROATE
     Dosage: INHALE 1 PUFF, BID BY MOUTH
  7. PROAIR HFA [Concomitant]
     Active Substance: ALBUTEROL SULFATE
     Indication: WHEEZING
     Dosage: 2 PUFFS USING VALVED HOLDING CHAMBER EVERY 4 HRS, PRN
     Route: 055
  8. SMZ?TMP [Concomitant]
     Active Substance: SULFAMETHOXAZOLE\TRIMETHOPRIM
  9. SODIUM CHLORIDE. [Concomitant]
     Active Substance: SODIUM CHLORIDE
     Dosage: 4 MILLILITER, BID
     Route: 055
  10. PULMOZYME [Concomitant]
     Active Substance: DORNASE ALFA
     Dosage: 2.5 MG (2.5 ML), QD
     Route: 055
  11. PREVACID [Concomitant]
     Active Substance: LANSOPRAZOLE
     Dosage: 15 MG (1 TABLET), QD. DISSOLVE IN 4 ML OF WATER AND DRINK
     Route: 048
  12. ORKAMBI [Suspect]
     Active Substance: IVACAFTOR\LUMACAFTOR
     Dosage: 200/250 MG, BID
     Route: 048
     Dates: start: 20180423
  13. ZENPEP [Concomitant]
     Active Substance: PANCRELIPASE AMYLASE\PANCRELIPASE LIPASE\PANCRELIPASE PROTEASE
     Dosage: 4 DF WITH EACH MEAL AND 3 WITH EACH SNACK
     Route: 048
  14. BACTRIM [Concomitant]
     Active Substance: SULFAMETHOXAZOLE\TRIMETHOPRIM
  15. OCEAN SALINE NASAL SPRAY [Concomitant]
     Active Substance: SODIUM CHLORIDE
     Dosage: 1 SPRAY INTO NOSE, BID
     Route: 055
  16. RELIZORB [Concomitant]
  17. TRIAMCINOLONE ACETONIDE. [Concomitant]
     Active Substance: TRIAMCINOLONE ACETONIDE
     Dosage: APPLY EXTERNALLY TO AFFECTED AREA, BID
     Route: 061
  18. ORKAMBI [Suspect]
     Active Substance: IVACAFTOR\LUMACAFTOR
     Indication: CYSTIC FIBROSIS
     Dosage: 2 DOSAGE FORM (100/125 MG EACH), BID
     Route: 048
     Dates: start: 20171219, end: 20180315
  19. AZITHROMYCIN ANHYDROUS. [Concomitant]
     Active Substance: AZITHROMYCIN ANHYDROUS
     Dosage: 1 DOSAGE FORM, THREE TIMES A WEEK (MON, WED, FRI)
  20. LORATADINE. [Concomitant]
     Active Substance: LORATADINE
     Dosage: 5 MG (5ML), QD
     Route: 048

REACTIONS (8)
  - Blood bilirubin increased [Not Recovered/Not Resolved]
  - Aspartate aminotransferase increased [Not Recovered/Not Resolved]
  - Gamma-glutamyltransferase increased [Not Recovered/Not Resolved]
  - Cough [Recovering/Resolving]
  - Blood creatine phosphokinase increased [Unknown]
  - Nasal congestion [Recovered/Resolved]
  - Alanine aminotransferase increased [Not Recovered/Not Resolved]
  - Dyspnoea [Recovered/Resolved]

NARRATIVE: CASE EVENT DATE: 201712
